FAERS Safety Report 18641784 (Version 1)
Quarter: 2020Q4

REPORT INFORMATION
  Report Type: Spontaneous
  Country: JP (occurrence: JP)
  Receive Date: 20201221
  Receipt Date: 20201221
  Transmission Date: 20210114
  Serious: Yes (Other)
  Sender: FDA-Public Use
  Company Number: JP-APOTEX-2020AP024446

PATIENT
  Age: 82 Year
  Sex: Female

DRUGS (1)
  1. PAXIL CR [Suspect]
     Active Substance: PAROXETINE HYDROCHLORIDE
     Indication: DEPRESSED MOOD
     Dosage: 37.5 MG, QD
     Route: 048

REACTIONS (3)
  - Dysphagia [Unknown]
  - Intestinal obstruction [Recovered/Resolved]
  - Peritonitis [Recovered/Resolved]
